FAERS Safety Report 19381810 (Version 1)
Quarter: 2021Q2

REPORT INFORMATION
  Report Type: Spontaneous
  Country: CN (occurrence: CN)
  Receive Date: 20210607
  Receipt Date: 20210607
  Transmission Date: 20210717
  Serious: Yes (Hospitalization)
  Sender: FDA-Public Use
  Company Number: CN-ASTRAZENECA-2021A484685

PATIENT
  Age: 17187 Day
  Sex: Male
  Weight: 51.9 kg

DRUGS (7)
  1. GAINUO [Suspect]
     Active Substance: VINORELBINE TARTRATE
     Indication: LUNG NEOPLASM
     Route: 041
     Dates: start: 20210512, end: 20210519
  2. SODIUM CHLORIDE. [Concomitant]
     Active Substance: SODIUM CHLORIDE
     Dosage: 500.0ML ONCE/SINGLE ADMINISTRATION
     Route: 042
  3. RECOMBINANT HUMAN ENDOSTATIN [Suspect]
     Active Substance: ENDOSTATIN
     Indication: LUNG NEOPLASM
     Route: 041
     Dates: start: 20210512, end: 20210518
  4. LUBEI (NEDAPLATIN) [Suspect]
     Active Substance: NEDAPLATIN
     Indication: LUNG NEOPLASM
     Route: 041
     Dates: start: 20210512, end: 20210512
  5. SODIUM CHLORIDE. [Concomitant]
     Active Substance: SODIUM CHLORIDE
     Dosage: 125.0ML ONCE/SINGLE ADMINISTRATION
     Route: 042
     Dates: start: 20210412
  6. SODIUM CHLORIDE. [Concomitant]
     Active Substance: SODIUM CHLORIDE
     Dosage: 125.0ML ONCE/SINGLE ADMINISTRATION
     Route: 042
     Dates: start: 20210519
  7. TAGRISSO [Suspect]
     Active Substance: OSIMERTINIB
     Indication: LUNG NEOPLASM
     Route: 048
     Dates: start: 20210512, end: 20210528

REACTIONS (1)
  - Granulocytopenia [Recovering/Resolving]

NARRATIVE: CASE EVENT DATE: 20210526
